FAERS Safety Report 6555722-3 (Version None)
Quarter: 2010Q1

REPORT INFORMATION
  Report Type: 
  Country: None (occurrence: None)
  Receive Date: 20100128
  Receipt Date: 20100122
  Transmission Date: 20100710
  Serious: Yes (Death)
  Sender: FDA-Public Use
  Company Number: MX-BRISTOL-MYERS SQUIBB COMPANY-14302756

PATIENT
  Age: 49 Year
  Sex: Male

DRUGS (7)
  1. ABATACEPT [Suspect]
     Indication: RHEUMATOID ARTHRITIS
     Dosage: TAKEN VIA SC/ORAL , DISCONTINUED ON 13AUG08
     Route: 042
     Dates: start: 20080716, end: 20080813
  2. PLACEBO [Suspect]
     Indication: RHEUMATOID ARTHRITIS
     Dosage: DRUG INTERRUPTED ON 13AUG08
     Route: 058
     Dates: start: 20080716, end: 20080813
  3. DICLOFENAC SODIUM [Concomitant]
     Dates: start: 20071101
  4. OMEPRAZOLE [Concomitant]
     Dates: start: 20071101
  5. FOLIC ACID [Concomitant]
     Dates: start: 20071101
  6. PREDNISONE TAB [Concomitant]
     Dates: start: 20071101
  7. PARACETAMOL [Concomitant]
     Dates: start: 20071101

REACTIONS (2)
  - MULTI-ORGAN FAILURE [None]
  - PNEUMONIA NECROTISING [None]
